FAERS Safety Report 16926732 (Version 2)
Quarter: 2019Q4

REPORT INFORMATION
  Report Type: Spontaneous
  Country: US (occurrence: US)
  Receive Date: 20191016
  Receipt Date: 20191108
  Transmission Date: 20200122
  Serious: No
  Sender: FDA-Public Use
  Company Number: US-SA-2019SA285024

PATIENT
  Age: 59 Year
  Sex: Female

DRUGS (2)
  1. DUPIXENT [Suspect]
     Active Substance: DUPILUMAB
     Indication: ASTHMA
     Dosage: 300 MG, QOW
     Route: 058
     Dates: start: 20190820, end: 20190908
  2. BROVANA [Concomitant]
     Active Substance: ARFORMOTEROL TARTRATE
     Dosage: UNK

REACTIONS (6)
  - Musculoskeletal discomfort [Recovering/Resolving]
  - Pain [Recovering/Resolving]
  - Mobility decreased [Unknown]
  - Gait disturbance [Recovering/Resolving]
  - Hypersensitivity [Unknown]
  - Back pain [Unknown]

NARRATIVE: CASE EVENT DATE: 2019
